FAERS Safety Report 8817342 (Version 1)
Quarter: 2012Q4

REPORT INFORMATION
  Report Type: 
  Country: US (occurrence: US)
  Receive Date: 20121004
  Receipt Date: 20121004
  Transmission Date: 20130627
  Serious: Yes (Other)
  Sender: FDA-Public Use
  Company Number: CHPA2012US020415

PATIENT
  Age: 81 Year
  Sex: Male

DRUGS (1)
  1. BENEFIBER W/ WHEAT DEXTRIN [Suspect]
     Indication: NUTRITIONAL SUPPORT
     Dosage: 2 TSP, TID
     Route: 048
     Dates: start: 1992

REACTIONS (3)
  - Aneurysm [Recovered/Resolved]
  - Post procedural infection [Recovered/Resolved]
  - Scar [Recovered/Resolved]
